FAERS Safety Report 6007543-8 (Version None)
Quarter: 2008Q4

REPORT INFORMATION
  Report Type: 
  Country: None (occurrence: None)
  Receive Date: 20081217
  Receipt Date: 20080505
  Transmission Date: 20090506
  Serious: Yes (Hospitalization)
  Sender: FDA-Public Use
  Company Number: US-ASTRAZENECA-2008UW09305

PATIENT
  Age: 73 Year
  Sex: Male
  Weight: 80.3 kg

DRUGS (4)
  1. CRESTOR [Suspect]
     Indication: BLOOD CHOLESTEROL INCREASED
     Route: 048
     Dates: end: 20080101
  2. CRESTOR [Suspect]
     Route: 048
     Dates: start: 20080101
  3. ZETIA [Concomitant]
  4. DIOVAN [Concomitant]

REACTIONS (2)
  - ABDOMINAL PAIN UPPER [None]
  - HEPATIC ENZYME ABNORMAL [None]
